FAERS Safety Report 9828059 (Version 1)
Quarter: 2014Q1

REPORT INFORMATION
  Report Type: Spontaneous
  Country: US (occurrence: US)
  Receive Date: 20140117
  Receipt Date: 20140117
  Transmission Date: 20141002
  Serious: No
  Sender: FDA-Public Use
  Company Number: US-GILEAD-2010-0031044

PATIENT
  Age: 58 Year
  Sex: Male

DRUGS (3)
  1. ATRIPLA [Suspect]
     Indication: PRODUCT USED FOR UNKNOWN INDICATION
  2. FLOMAX [Concomitant]
     Indication: PROPHYLAXIS
  3. DOXYCYCLINE [Concomitant]

REACTIONS (1)
  - Micturition urgency [Unknown]
